FAERS Safety Report 21792854 (Version 2)
Quarter: 2023Q2

REPORT INFORMATION
  Report Type: Spontaneous
  Country: CH (occurrence: CH)
  Receive Date: 20221229
  Receipt Date: 20230612
  Transmission Date: 20230721
  Serious: Yes (Other)
  Sender: FDA-Public Use
  Company Number: CH-JNJFOC-20221203783

PATIENT
  Sex: Female
  Weight: 50 kg

DRUGS (8)
  1. RISPERDAL [Suspect]
     Active Substance: RISPERIDONE
     Indication: Product used for unknown indication
     Route: 065
     Dates: start: 2003, end: 2004
  2. RISPERDAL [Suspect]
     Active Substance: RISPERIDONE
     Route: 065
  3. RISPERDAL CONSTA [Suspect]
     Active Substance: RISPERIDONE
     Indication: Product used for unknown indication
     Route: 065
  4. RISPERDAL CONSTA [Suspect]
     Active Substance: RISPERIDONE
  5. RISPERDAL CONSTA [Suspect]
     Active Substance: RISPERIDONE
  6. RISPERDAL CONSTA [Suspect]
     Active Substance: RISPERIDONE
  7. ZYPREXA [Suspect]
     Active Substance: OLANZAPINE
     Indication: Product used for unknown indication
     Route: 065
     Dates: start: 2016
  8. RISPERDAL [Suspect]
     Active Substance: RISPERIDONE
     Indication: Product used for unknown indication
     Route: 065

REACTIONS (14)
  - Cardiac failure [Unknown]
  - Drug dependence [Unknown]
  - Hydrocephalus [Unknown]
  - Cardiac disorder [Unknown]
  - Illness [Unknown]
  - General physical health deterioration [Unknown]
  - Nerve injury [Unknown]
  - Hypoacusis [Unknown]
  - Memory impairment [Unknown]
  - Overweight [Not Recovered/Not Resolved]
  - Arthritis [Unknown]
  - Visual impairment [Unknown]
  - Dyspepsia [Unknown]
  - Vomiting [Unknown]
